FAERS Safety Report 14615010 (Version 2)
Quarter: 2018Q2

REPORT INFORMATION
  Report Type: Report from Study
  Country: DE (occurrence: DE)
  Receive Date: 20180308
  Receipt Date: 20180529
  Transmission Date: 20180711
  Serious: Yes (Other)
  Sender: FDA-Public Use
  Company Number: DE-PFIZER INC-2018092685

PATIENT
  Age: 76 Year
  Sex: Female
  Weight: 74 kg

DRUGS (18)
  1. EXEMESTANE. [Suspect]
     Active Substance: EXEMESTANE
     Indication: BREAST CANCER
     Dosage: DAILY DOSE: 25 MG EVERY DAY
     Route: 048
     Dates: start: 20130506, end: 20130516
  2. EXEMESTANE. [Suspect]
     Active Substance: EXEMESTANE
     Dosage: DAILY DOSE: 25 MG EVERY DAY
     Route: 048
     Dates: start: 20130529, end: 20131001
  3. PANTOPRAZOL [Concomitant]
     Active Substance: PANTOPRAZOLE SODIUM
     Dosage: 40 MG, UNK
     Route: 065
  4. JURNISTA [Concomitant]
     Active Substance: HYDROMORPHONE HYDROCHLORIDE
     Dosage: 16 MG, UNK
     Route: 065
  5. LACTULOSE. [Concomitant]
     Active Substance: LACTULOSE
     Dosage: 10 ML, UNK
     Route: 065
  6. LYRICA [Concomitant]
     Active Substance: PREGABALIN
     Dosage: 75 MG, UNK
     Route: 065
  7. AFINITOR [Suspect]
     Active Substance: EVEROLIMUS
     Dosage: DAILY DOSE: 5 MG EVERY DAY
     Route: 048
     Dates: start: 20130604, end: 20130618
  8. EXEMESTANE. [Suspect]
     Active Substance: EXEMESTANE
     Dosage: DAILY DOSE: 25 MG EVERY DAY
     Route: 048
     Dates: start: 20130518, end: 20130527
  9. LANTUS [Concomitant]
     Active Substance: INSULIN GLARGINE
     Dosage: UNK
     Route: 065
  10. TORACARD [Concomitant]
     Dosage: 5 MG, UNK
     Route: 065
  11. VOLTAREN RESINAT /00372302/ [Concomitant]
     Active Substance: DICLOFENAC SODIUM
     Dosage: UNK
     Route: 065
  12. AFINITOR [Suspect]
     Active Substance: EVEROLIMUS
     Dosage: DAILY DOSE: 5 MG EVERY DAY
     Route: 048
     Dates: start: 20130705, end: 20130829
  13. LISINOPRIL AL [Concomitant]
     Dosage: 10 MG, UNK
     Route: 065
  14. NOVAMINSULFON [Concomitant]
     Active Substance: METAMIZOLE
     Dosage: UNK
     Route: 065
  15. ACTRAPID [Concomitant]
     Active Substance: INSULIN HUMAN
     Dosage: UNK
     Route: 065
  16. VEROPTINSTADA [Concomitant]
     Dosage: 120 MG, UNK
     Route: 065
  17. AFINITOR [Suspect]
     Active Substance: EVEROLIMUS
     Indication: BREAST CANCER
     Dosage: DAILY DOSE: 10 MG EVERY DAY
     Route: 048
     Dates: start: 20130506, end: 20130521
  18. DIGIMERCK [Concomitant]
     Active Substance: DIGITOXIN
     Dosage: 0.1 MG, UNK
     Route: 065

REACTIONS (14)
  - Thrombocytopenia [Recovered/Resolved]
  - Erythema [Unknown]
  - Blood glucose decreased [Not Recovered/Not Resolved]
  - Stomatitis [Recovered/Resolved]
  - Flushing [Unknown]
  - Thrombocytopenia [Not Recovered/Not Resolved]
  - Vomiting [Recovering/Resolving]
  - Nausea [Recovering/Resolving]
  - Dizziness [Recovering/Resolving]
  - Anaemia [Not Recovered/Not Resolved]
  - Rash maculo-papular [Recovered/Resolved]
  - Pruritus [Not Recovered/Not Resolved]
  - Oedema [Not Recovered/Not Resolved]
  - Haematoma [Recovered/Resolved]

NARRATIVE: CASE EVENT DATE: 201305
